APPROVED DRUG PRODUCT: ACETAZOLAMIDE
Active Ingredient: ACETAZOLAMIDE
Strength: 125MG
Dosage Form/Route: TABLET;ORAL
Application: A211069 | Product #001 | TE Code: AB
Applicant: ZYDUS LIFESCIENCES GLOBAL FZE
Approved: Apr 4, 2023 | RLD: No | RS: No | Type: RX